FAERS Safety Report 25530629 (Version 1)
Quarter: 2025Q3

REPORT INFORMATION
  Report Type: Spontaneous
  Country: US (occurrence: None)
  Receive Date: 20250708
  Receipt Date: 20250708
  Transmission Date: 20251020
  Serious: Yes (Hospitalization, Disabling)
  Sender: FDA-CTU
  Company Number: None

PATIENT
  Age: 39 Year
  Sex: Male
  Weight: 85 kg

DRUGS (1)
  1. DULOXETINE [Suspect]
     Active Substance: DULOXETINE
     Dates: start: 20200102, end: 20210126

REACTIONS (7)
  - Mental disorder [None]
  - Sexual dysfunction [None]
  - Loss of libido [None]
  - Disturbance in attention [None]
  - Hypoaesthesia [None]
  - Asthenia [None]
  - Anhedonia [None]

NARRATIVE: CASE EVENT DATE: 20210301
